FAERS Safety Report 25716448 (Version 1)
Quarter: 2025Q3

REPORT INFORMATION
  Report Type: Spontaneous
  Country: US (occurrence: US)
  Receive Date: 20250822
  Receipt Date: 20250822
  Transmission Date: 20251020
  Serious: Yes (Death, Other)
  Sender: AMGEN
  Company Number: US-AMGEN-USASP2025164273

PATIENT

DRUGS (6)
  1. RITUXIMAB [Suspect]
     Active Substance: RITUXIMAB
     Indication: Diffuse large B-cell lymphoma recurrent
     Route: 065
  2. RITUXIMAB [Suspect]
     Active Substance: RITUXIMAB
     Indication: Diffuse large B-cell lymphoma refractory
  3. GEMCITABINE HYDROCHLORIDE\OXALIPLATIN [Suspect]
     Active Substance: GEMCITABINE HYDROCHLORIDE\OXALIPLATIN
     Indication: Diffuse large B-cell lymphoma recurrent
     Route: 065
  4. GEMCITABINE HYDROCHLORIDE\OXALIPLATIN [Suspect]
     Active Substance: GEMCITABINE HYDROCHLORIDE\OXALIPLATIN
     Indication: Diffuse large B-cell lymphoma refractory
  5. ZILOVERTAMAB VEDOTIN [Suspect]
     Active Substance: ZILOVERTAMAB VEDOTIN
     Indication: Diffuse large B-cell lymphoma recurrent
     Route: 065
  6. ZILOVERTAMAB VEDOTIN [Suspect]
     Active Substance: ZILOVERTAMAB VEDOTIN
     Indication: Diffuse large B-cell lymphoma refractory

REACTIONS (8)
  - Sepsis [Fatal]
  - Neutropenia [Unknown]
  - Respiratory failure [Unknown]
  - Diarrhoea [Unknown]
  - Nausea [Unknown]
  - Anaemia [Unknown]
  - Platelet count decreased [Unknown]
  - Neutrophil count decreased [Unknown]
